FAERS Safety Report 25632819 (Version 14)
Quarter: 2025Q4

REPORT INFORMATION
  Report Type: Report from Study
  Country: CA (occurrence: CA)
  Receive Date: 20250801
  Receipt Date: 20251231
  Transmission Date: 20260117
  Serious: Yes (Hospitalization, Other)
  Sender: GILEAD
  Company Number: CA-GSK-CA2025084354

PATIENT
  Age: 72 Year
  Sex: Female

DRUGS (15)
  1. AMBRISENTAN [Suspect]
     Active Substance: AMBRISENTAN
     Indication: Pulmonary arterial hypertension
     Dosage: 5 MG, QD
     Route: 048
     Dates: start: 20220916
  2. AMBRISENTAN [Suspect]
     Active Substance: AMBRISENTAN
     Indication: Pulmonary hypertension
  3. AMBRISENTAN [Suspect]
     Active Substance: AMBRISENTAN
     Indication: Connective tissue disorder
  4. TYLENOL [Suspect]
     Active Substance: ACETAMINOPHEN
     Indication: Pain
     Dosage: 500 MG EVERY 6 HOURS
     Route: 065
  5. CLOPIDOGREL [Suspect]
     Active Substance: CLOPIDOGREL BISULFATE
     Indication: Product used for unknown indication
     Dosage: UNK
     Route: 065
  6. CLOPIDOGREL [Suspect]
     Active Substance: CLOPIDOGREL BISULFATE
     Dosage: UNK
     Route: 065
  7. LASIX [Suspect]
     Active Substance: FUROSEMIDE
     Indication: Product used for unknown indication
     Dosage: UNK
     Route: 065
  8. UBRELVY [Suspect]
     Active Substance: UBROGEPANT
     Indication: Headache
     Dosage: UNK
     Route: 065
  9. UBRELVY [Suspect]
     Active Substance: UBROGEPANT
     Dosage: UNK
     Route: 065
  10. INFLUENZA VIRUS VACCINE [Suspect]
     Active Substance: INFLUENZA VIRUS VACCINE
     Indication: Prophylaxis
     Dosage: UNK
     Route: 065
     Dates: start: 20251214
  11. COVID-19 VACCINE NOS [Suspect]
     Active Substance: COVID-19 VACCINE
     Indication: Prophylaxis
     Dosage: UNK
     Route: 065
     Dates: start: 20251214
  12. UPTRAVI [Concomitant]
     Active Substance: SELEXIPAG
     Indication: Product used for unknown indication
     Dosage: UNK
     Route: 065
  13. UPTRAVI [Concomitant]
     Active Substance: SELEXIPAG
     Dosage: UNK
  14. ADCIRCA [Concomitant]
     Active Substance: TADALAFIL
     Indication: Product used for unknown indication
     Dosage: UNK
     Route: 065
  15. ADCIRCA [Concomitant]
     Active Substance: TADALAFIL
     Dosage: UNK

REACTIONS (23)
  - Stent placement [Unknown]
  - Migraine [Recovering/Resolving]
  - Pulmonary hypertension [Not Recovered/Not Resolved]
  - Paraesthesia [Recovering/Resolving]
  - Pain in jaw [Unknown]
  - Arthralgia [Unknown]
  - Pain in extremity [Recovering/Resolving]
  - Dyspnoea [Recovering/Resolving]
  - Heart rate increased [Recovering/Resolving]
  - Weight decreased [Unknown]
  - Fatigue [Unknown]
  - Decreased appetite [Unknown]
  - Haemoglobin decreased [Unknown]
  - Abdominal pain upper [Unknown]
  - Abdominal discomfort [Recovering/Resolving]
  - Anxiety [Unknown]
  - Anaemia [Unknown]
  - Pain [Recovering/Resolving]
  - Vomiting [Unknown]
  - Diarrhoea [Unknown]
  - Photophobia [Unknown]
  - Malaise [Unknown]
  - Serum ferritin decreased [Unknown]

NARRATIVE: CASE EVENT DATE: 20250701
